FAERS Safety Report 9659825 (Version 1)
Quarter: 2013Q4

REPORT INFORMATION
  Report Type: Spontaneous
  Country: US (occurrence: None)
  Receive Date: 20131029
  Receipt Date: 20131029
  Transmission Date: 20140711
  Serious: Yes (Death, Other)
  Sender: FDA-Public Use
  Company Number: ADR-2013-01943

PATIENT
  Age: 73 Year
  Sex: Male

DRUGS (2)
  1. BACLOFEN INTRATHECAL - 180MCG/ML; SEE B5 [Suspect]
  2. MORPHINE INTRATHECAL - 15.0 MG/ML ; SEE B5 [Suspect]

REACTIONS (1)
  - Death [None]
